FAERS Safety Report 5306321-2 (Version None)
Quarter: 2007Q2

REPORT INFORMATION
  Report Type: 
  Country: None (occurrence: None)
  Receive Date: 20070424
  Receipt Date: 20070417
  Transmission Date: 20071010
  Serious: Yes (Other)
  Sender: FDA-Public Use
  Company Number: US-AMGEN-KDL220451

PATIENT
  Sex: Female
  Weight: 73.5 kg

DRUGS (4)
  1. PROCRIT [Suspect]
     Indication: ANAEMIA
     Route: 042
     Dates: start: 20061122, end: 20061216
  2. PRENATAL VITAMINS [Concomitant]
     Route: 048
     Dates: start: 20060503, end: 20061216
  3. IRON [Concomitant]
     Route: 048
     Dates: start: 20061122, end: 20061216
  4. ZOVIRAX [Concomitant]
     Route: 048
     Dates: start: 20061207, end: 20061216

REACTIONS (1)
  - GESTATIONAL DIABETES [None]
